FAERS Safety Report 6862385-6 (Version None)
Quarter: 2010Q3

REPORT INFORMATION
  Report Type: 
  Country: None (occurrence: None)
  Receive Date: 20100721
  Receipt Date: 20100712
  Transmission Date: 20110219
  Serious: Yes (Hospitalization)
  Sender: FDA-Public Use
  Company Number: FR-ASTRAZENECA-2010SE32547

PATIENT
  Age: 29093 Day
  Sex: Male

DRUGS (11)
  1. NEXIUM [Suspect]
     Route: 048
     Dates: end: 20090401
  2. NORSET [Suspect]
     Route: 048
     Dates: end: 20090401
  3. PYOSTACINE [Suspect]
     Route: 048
     Dates: start: 20090410, end: 20090421
  4. SERESTA [Suspect]
     Route: 048
  5. DILTIAZEM RPG [Suspect]
     Dates: end: 20090401
  6. METFORMIN HCL [Suspect]
     Route: 048
     Dates: end: 20090401
  7. MEMANTINE HCL [Concomitant]
     Dates: end: 20091007
  8. EQUANIL [Concomitant]
     Dates: end: 20091007
  9. ISOPTIN [Concomitant]
     Dates: end: 20091007
  10. XANAX [Concomitant]
     Dates: end: 20091007
  11. DIFFU K [Concomitant]
     Dates: end: 20091007

REACTIONS (2)
  - ERYTHEMA [None]
  - SKIN EXFOLIATION [None]
